FAERS Safety Report 15058319 (Version 2)
Quarter: 2018Q3

REPORT INFORMATION
  Report Type: Report from Study
  Country: US (occurrence: US)
  Receive Date: 20180625
  Receipt Date: 20180725
  Transmission Date: 20181010
  Serious: No
  Sender: FDA-Public Use
  Company Number: US-009507513-1806USA006438

PATIENT

DRUGS (1)
  1. IMPLANON [Suspect]
     Active Substance: ETONOGESTREL
     Dosage: 1 ROD
     Route: 059

REACTIONS (3)
  - Complication of device insertion [Not Recovered/Not Resolved]
  - Product quality issue [Unknown]
  - No adverse event [Unknown]
